FAERS Safety Report 23094182 (Version 2)
Quarter: 2023Q4

REPORT INFORMATION
  Report Type: Report from Study
  Country: US (occurrence: US)
  Receive Date: 20231023
  Receipt Date: 20231220
  Transmission Date: 20240109
  Serious: Yes (Other)
  Sender: FDA-Public Use
  Company Number: US-ABBVIE-5397023

PATIENT
  Sex: Male

DRUGS (1)
  1. HUMIRA [Suspect]
     Active Substance: ADALIMUMAB
     Indication: Rheumatoid arthritis
     Dosage: FORM STRENGTH: 40 MILLIGRAM, CITRATE FREE
     Route: 058
     Dates: start: 20230424

REACTIONS (6)
  - Pulmonary fibrosis [Unknown]
  - Rheumatoid arthritis [Unknown]
  - Idiopathic pulmonary fibrosis [Unknown]
  - Pulmonary fibrosis [Not Recovered/Not Resolved]
  - Lung neoplasm malignant [Unknown]
  - Vertigo [Unknown]

NARRATIVE: CASE EVENT DATE: 20230101
